FAERS Safety Report 5451822-X (Version None)
Quarter: 2007Q3

REPORT INFORMATION
  Report Type: 
  Country: None (occurrence: None)
  Receive Date: 20070806
  Receipt Date: 20070212
  Transmission Date: 20080115
  Serious: Yes (Other)
  Sender: FDA-Public Use
  Company Number: 34385

PATIENT
  Age: 38 Year
  Sex: Female
  Weight: 79.3795 kg

DRUGS (8)
  1. MIDAZOLAM HCL [Suspect]
     Indication: SEDATION
     Dosage: 2 MG 3-4 MIN/IV (TOTAL 10 MG)
     Dates: start: 20070125
  2. MIDAZOLAM HCL [Suspect]
     Indication: SEDATION
  3. PAXIL [Concomitant]
  4. VITAMIN B COMPLEX CAP [Concomitant]
  5. FE [Concomitant]
  6. M.V.I. [Concomitant]
  7. FENTANYL [Concomitant]
  8. VALIUM [Concomitant]

REACTIONS (1)
  - DRUG INEFFECTIVE [None]
